FAERS Safety Report 9204586 (Version 2)
Quarter: 2013Q2

REPORT INFORMATION
  Report Type: Report from Study
  Country: US (occurrence: US)
  Receive Date: 20130402
  Receipt Date: 20130610
  Transmission Date: 20140414
  Serious: Yes (Other)
  Sender: FDA-Public Use
  Company Number: US-JNJFOC-20130318150

PATIENT
  Sex: Male
  Weight: 86.64 kg

DRUGS (9)
  1. SIMPONI [Suspect]
     Indication: RHEUMATOID ARTHRITIS
     Route: 058
     Dates: start: 201205
  2. SIMPONI [Suspect]
     Indication: RHEUMATOID ARTHRITIS
     Route: 058
     Dates: start: 201108, end: 201205
  3. SIMPONI [Suspect]
     Indication: RHEUMATOID ARTHRITIS
     Route: 058
     Dates: start: 201105, end: 201108
  4. EYE DROPS [Suspect]
     Indication: IRITIS
     Route: 031
     Dates: start: 201210
  5. ENALAPRIL [Concomitant]
     Indication: BLOOD PRESSURE ABNORMAL
     Route: 048
     Dates: start: 2010
  6. FOLIC ACID [Concomitant]
     Route: 048
     Dates: start: 201302
  7. NABUMETONE [Concomitant]
     Route: 048
  8. MULTIVIT [Concomitant]
  9. CALCIUM AND VITAMIN D [Concomitant]

REACTIONS (6)
  - Cataract [Unknown]
  - Inappropriate schedule of drug administration [Not Recovered/Not Resolved]
  - Iritis [Unknown]
  - Therapeutic response decreased [Recovered/Resolved]
  - Joint swelling [Recovering/Resolving]
  - Joint stiffness [Recovering/Resolving]
